FAERS Safety Report 8023693-9 (Version None)
Quarter: 2012Q1

REPORT INFORMATION
  Report Type: 
  Country: None (occurrence: None)
  Receive Date: 20120103
  Receipt Date: 20120103
  Transmission Date: 20120608
  Serious: Yes (Hospitalization)
  Sender: FDA-Public Use
  Company Number: None

PATIENT
  Sex: Male
  Weight: 103.9 kg

DRUGS (1)
  1. CYTARABINE [Suspect]
     Dosage: 41220 MG
     Dates: end: 20111222

REACTIONS (7)
  - VESSEL PUNCTURE SITE REACTION [None]
  - PANCYTOPENIA [None]
  - ABSCESS [None]
  - STAPHYLOCOCCUS TEST POSITIVE [None]
  - PHLEBITIS SUPERFICIAL [None]
  - MEDICAL DEVICE COMPLICATION [None]
  - PURULENCE [None]
